FAERS Safety Report 5113637-1 (Version None)
Quarter: 2006Q3

REPORT INFORMATION
  Report Type: 
  Country: None (occurrence: None)
  Receive Date: 20060920
  Receipt Date: 20060911
  Transmission Date: 20061208
  Serious: Yes (Life-Threatening, Hospitalization, Disabling)
  Sender: FDA-Public Use
  Company Number: 2006100644

PATIENT
  Age: 67 Year
  Sex: Female
  Weight: 16.7831 kg

DRUGS (1)
  1. AROMASIN [Suspect]
     Indication: BREAST CANCER
     Dosage: 25 MG (25 MG, DAILY), ORAL
     Route: 048
     Dates: start: 20030620, end: 20060606

REACTIONS (6)
  - CENTRAL PONTINE MYELINOLYSIS [None]
  - DEMYELINATION [None]
  - DISORIENTATION [None]
  - ELECTROLYTE IMBALANCE [None]
  - LEUKOARAIOSIS [None]
  - PARKINSONISM [None]
